FAERS Safety Report 13662820 (Version 1)
Quarter: 2017Q2

REPORT INFORMATION
  Report Type: Spontaneous
  Country: US (occurrence: US)
  Receive Date: 20170616
  Receipt Date: 20170616
  Transmission Date: 20170830
  Serious: Yes (Hospitalization, Disabling)
  Sender: FDA-Public Use
  Company Number: None

PATIENT
  Age: 24 Year
  Sex: Female
  Weight: 99 kg

DRUGS (2)
  1. LEVOFLOXIN 750MG [Suspect]
     Active Substance: LEVOFLOXACIN
     Indication: BRONCHITIS
     Route: 048
     Dates: start: 20140828, end: 20140904
  2. VITAMINS [Concomitant]
     Active Substance: VITAMINS

REACTIONS (17)
  - Skin burning sensation [None]
  - Vitreous floaters [None]
  - Hiatus hernia [None]
  - Anxiety [None]
  - Dysphagia [None]
  - Fluid intake reduced [None]
  - Back pain [None]
  - Ocular discomfort [None]
  - Feeling abnormal [None]
  - Photopsia [None]
  - Head discomfort [None]
  - Pain in jaw [None]
  - Feeding disorder [None]
  - Pain in extremity [None]
  - Swelling [None]
  - Gastrooesophageal reflux disease [None]
  - Tinnitus [None]

NARRATIVE: CASE EVENT DATE: 20140908
